FAERS Safety Report 8912563 (Version 3)
Quarter: 2012Q4

REPORT INFORMATION
  Report Type: 
  Country: US (occurrence: US)
  Receive Date: 20121116
  Receipt Date: 20121218
  Transmission Date: 20130627
  Serious: Yes (Life-Threatening, Disabling, Other)
  Sender: FDA-Public Use
  Company Number: US-MERCK-1211USA006035

PATIENT
  Sex: Female
  Weight: 110.66 kg

DRUGS (17)
  1. JANUVIA [Suspect]
     Indication: TYPE 2 DIABETES MELLITUS
     Dosage: 100 mg, qd
     Route: 048
     Dates: start: 20110624, end: 20121108
  2. ASPIRIN [Concomitant]
     Dosage: 1 DF, daily
     Route: 048
  3. CALCIUM (UNSPECIFIED) [Concomitant]
     Dosage: 1 DF, daily
     Route: 048
     Dates: start: 20081209
  4. CREON (PANCREATIN) [Concomitant]
     Dosage: 8 DF, daily
     Route: 048
  5. GLUCOSAMINE [Concomitant]
     Dosage: UNK, prn
     Route: 048
     Dates: start: 20100818
  6. LISINOPRIL [Concomitant]
     Dosage: 1 DF, daily
     Route: 048
     Dates: start: 20070927
  7. METFORMIN HYDROCHLORIDE [Concomitant]
     Dosage: 1 DF, hs with dinner
     Route: 048
     Dates: start: 20080429
  8. SINGULAIR [Concomitant]
     Dosage: 1 DF, daily as directed
     Route: 048
     Dates: start: 20070927
  9. MORPHINE SULFATE [Concomitant]
     Dosage: 15 mg, prn
     Route: 048
  10. NASONEX [Concomitant]
     Dosage: 2 DF, in each nostril once daily
     Route: 055
     Dates: start: 20070927, end: 20111003
  11. IRON (UNSPECIFIED) [Concomitant]
     Dosage: 325 (65 Fe) mg,take as directed
     Route: 048
     Dates: start: 20100818
  12. MAGNESIUM (UNSPECIFIED) [Concomitant]
     Dosage: UNK
     Route: 048
  13. VITAMINS (UNSPECIFIED) [Concomitant]
     Dosage: 1 DF, daily
     Route: 048
     Dates: start: 20080918
  14. SUNMARK STOOL SOFTENER [Concomitant]
     Dosage: UNK
  15. VALACYCLOVIR HYDROCHLORIDE [Concomitant]
     Dosage: take as directed
     Route: 048
     Dates: start: 20120824
  16. OMEGA-3 MARINE TRIGLYCERIDES [Concomitant]
     Dosage: 1000/200 mg, take as directed
     Route: 048
     Dates: start: 20100818, end: 20120328
  17. WELCHOL [Concomitant]
     Dosage: one packet daily in 8oz of water
     Route: 048
     Dates: start: 20101208, end: 20120328

REACTIONS (4)
  - Pancreatic carcinoma metastatic [Not Recovered/Not Resolved]
  - Metastases to liver [Not Recovered/Not Resolved]
  - Uterine cancer [Not Recovered/Not Resolved]
  - Endometrial cancer [Unknown]
